FAERS Safety Report 12939603 (Version 3)
Quarter: 2016Q4

REPORT INFORMATION
  Report Type: Report from Study
  Country: CA (occurrence: CA)
  Receive Date: 20161114
  Receipt Date: 20161208
  Transmission Date: 20170207
  Serious: Yes (Other)
  Sender: FDA-Public Use
  Company Number: CA-BEH-2016075240

PATIENT
  Sex: Female

DRUGS (1)
  1. HIZENTRA [Suspect]
     Active Substance: HUMAN IMMUNOGLOBULIN G
     Indication: STIFF PERSON SYNDROME
     Dosage: 20 G, QW
     Route: 058
     Dates: start: 2013

REACTIONS (5)
  - Fatigue [Unknown]
  - Musculoskeletal stiffness [Unknown]
  - Stiff person syndrome [Unknown]
  - Infusion site mass [Unknown]
  - Activities of daily living impaired [Unknown]
